FAERS Safety Report 8455414-X (Version None)
Quarter: 2012Q2

REPORT INFORMATION
  Report Type: 
  Country: None (occurrence: None)
  Receive Date: 20120621
  Receipt Date: 20120611
  Transmission Date: 20120825
  Serious: Yes (Hospitalization)
  Sender: FDA-Public Use
  Company Number: CA-BRISTOL-MYERS SQUIBB COMPANY-16684573

PATIENT
  Age: 42 Year
  Sex: Female

DRUGS (15)
  1. CELLCEPT [Concomitant]
  2. BENADRYL [Concomitant]
     Dosage: AFTER ORENCIA
  3. OMEPRAZOLE [Concomitant]
  4. HYDROMORPHONE HCL [Concomitant]
     Dosage: 6MG
  5. PREDNISONE [Concomitant]
  6. HYDROXYCHLOROQUINE SULFATE [Concomitant]
  7. VENTOLIN [Concomitant]
  8. ATROVENT [Concomitant]
  9. ADALAT [Concomitant]
  10. ENALAPRIL MALEATE [Concomitant]
  11. TYLENOL W/ CODEINE NO. 3 [Concomitant]
  12. NORTRIPTYLINE HYDROCHLORIDE [Concomitant]
  13. ORENCIA [Suspect]
     Indication: RHEUMATOID ARTHRITIS
     Dosage: MAY11-JUN11,1ST ON 08MAY12,INTD, 2ND INF ON 05JUN12
     Route: 042
     Dates: start: 20110501
  14. VITAMIN D [Concomitant]
  15. LORAZEPAM [Concomitant]

REACTIONS (1)
  - SYSTEMIC LUPUS ERYTHEMATOSUS [None]
